FAERS Safety Report 10048093 (Version 2)
Quarter: 2014Q1

REPORT INFORMATION
  Report Type: Spontaneous
  Country: JP (occurrence: JP)
  Receive Date: 20140331
  Receipt Date: 20140331
  Transmission Date: 20141002
  Serious: Yes (Other)
  Sender: FDA-Public Use
  Company Number: JP-PFIZER INC-2014087186

PATIENT
  Age: 81 Year
  Sex: Female

DRUGS (1)
  1. SEIBULE [Suspect]
     Dosage: 150 MG, 1X/DAY
     Route: 048
     Dates: start: 20130703, end: 20131010

REACTIONS (1)
  - Hepatic function abnormal [Unknown]
